FAERS Safety Report 10462269 (Version 1)
Quarter: 2014Q3

REPORT INFORMATION
  Report Type: Spontaneous
  Country: US (occurrence: None)
  Receive Date: 20140916
  Receipt Date: 20140916
  Transmission Date: 20150326
  Serious: No
  Sender: FDA-Public Use
  Company Number: US-145402

PATIENT
  Sex: Male

DRUGS (1)
  1. WINRHO SDF LIQUID [Suspect]
     Active Substance: HUMAN RHO(D) IMMUNE GLOBULIN
     Indication: IMMUNE THROMBOCYTOPENIC PURPURA
     Dates: start: 201204, end: 201304

REACTIONS (3)
  - Headache [None]
  - Chills [None]
  - Back pain [None]

NARRATIVE: CASE EVENT DATE: 201304
